FAERS Safety Report 9796661 (Version 2)
Quarter: 2014Q1

REPORT INFORMATION
  Report Type: Spontaneous
  Country: FR (occurrence: FR)
  Receive Date: 20140103
  Receipt Date: 20140103
  Transmission Date: 20141002
  Serious: Yes (Life-Threatening)
  Sender: FDA-Public Use
  Company Number: FR-B.I. PHARMACEUTICALS,INC./RIDGEFIELD-2013-BI-43282FF

PATIENT
  Age: 69 Year
  Sex: Male
  Weight: 115 kg

DRUGS (5)
  1. PRADAXA [Suspect]
     Indication: ATRIAL FIBRILLATION
     Dosage: 300 MG
     Route: 048
     Dates: start: 20121012, end: 20121025
  2. LASILIX 125 [Concomitant]
  3. BISOPROLOL 10 [Concomitant]
  4. LISINOPRIL 20 [Concomitant]
  5. HEMIGOXINE 0.125 [Concomitant]

REACTIONS (1)
  - Jaundice [Recovered/Resolved]
